FAERS Safety Report 6756122-3 (Version None)
Quarter: 2010Q2

REPORT INFORMATION
  Report Type: 
  Country: None (occurrence: None)
  Receive Date: 20100604
  Receipt Date: 20100601
  Transmission Date: 20101027
  Serious: Yes (Other)
  Sender: FDA-Public Use
  Company Number: GR-ROXANE LABORATORIES, INC.-2010-RO-00658RO

PATIENT
  Age: 62 Year
  Sex: Female
  Weight: 80 kg

DRUGS (6)
  1. LITHIUM CARBONATE CAP [Suspect]
     Indication: MANIA
     Dosage: 900 MG
  2. METHOTREXATE [Suspect]
     Indication: PSORIASIS
  3. CARBAMAZEPINE [Suspect]
     Indication: MANIA
     Dosage: 800 MG
  4. LITHIUM SULPHATE [Suspect]
     Indication: MANIA
     Dosage: 1320 MG
  5. ACITRETIN [Suspect]
     Indication: PSORIASIS
     Dosage: 50 MG
  6. CYCLOSPORINE [Suspect]
     Indication: PSORIASIS
     Dosage: 100 MG

REACTIONS (1)
  - PSORIASIS [None]
